FAERS Safety Report 22333413 (Version 1)
Quarter: 2023Q2

REPORT INFORMATION
  Report Type: Spontaneous
  Country: US (occurrence: None)
  Receive Date: 20230516
  Receipt Date: 20230516
  Transmission Date: 20230722
  Serious: Yes (Other)
  Sender: FDA-Public Use
  Company Number: None

PATIENT
  Age: 34 Year
  Sex: Male
  Weight: 130.63 kg

DRUGS (1)
  1. LEVOTHYROXINE [Suspect]
     Active Substance: LEVOTHYROXINE
     Indication: Post procedural hypothyroidism
     Dosage: 175MG DAILY ORALLY?
     Route: 048
     Dates: start: 20221003, end: 20221011

REACTIONS (2)
  - Anal incontinence [None]
  - Urinary incontinence [None]

NARRATIVE: CASE EVENT DATE: 20221010
